FAERS Safety Report 15617185 (Version 1)
Quarter: 2018Q4

REPORT INFORMATION
  Report Type: Other
  Country: GB (occurrence: GB)
  Receive Date: 20181114
  Receipt Date: 20181114
  Transmission Date: 20190205
  Serious: Yes (Other)
  Sender: FDA-Public Use
  Company Number: GB-BECTON DICKINSON-2018BDN00425

PATIENT
  Age: 60 Year
  Sex: Female
  Weight: 84 kg

DRUGS (8)
  1. CORSODYL [Concomitant]
     Active Substance: CHLORHEXIDINE GLUCONATE
     Dosage: USE AS DIRECTED
     Dates: start: 20180108
  2. EVOREL [Concomitant]
     Dosage: UNK, AS NEEDED
     Dates: start: 20180108
  3. OMEPRAZOLE. [Concomitant]
     Active Substance: OMEPRAZOLE
     Indication: PROPHYLAXIS AGAINST GASTROINTESTINAL ULCER
     Dosage: 1 DOSAGE UNITS
     Dates: start: 20180108
  4. FULTIUM-D3 [Concomitant]
     Active Substance: CHOLECALCIFEROL
     Dosage: 2 DOSAGE UNITS
     Dates: start: 20180108
  5. CHLORAPREP WITH TINT [Suspect]
     Active Substance: CHLORHEXIDINE GLUCONATE\ISOPROPYL ALCOHOL
     Dosage: UNK
     Dates: start: 20181012
  6. ACETYLSALICYLIC ACID [Concomitant]
     Active Substance: ASPIRIN
     Dosage: 2 DOSAGE UNITS
     Dates: start: 20180108
  7. STEMETIL [Concomitant]
     Active Substance: PROCHLORPERAZINE MALEATE
     Dosage: 3 DOSAGE UNITS
     Dates: start: 20180108
  8. NAPROXEN. [Concomitant]
     Active Substance: NAPROXEN
     Dosage: 2 DOSAGE UNITS
     Dates: start: 20180108

REACTIONS (1)
  - Dermatitis contact [Not Recovered/Not Resolved]

NARRATIVE: CASE EVENT DATE: 20181012
